FAERS Safety Report 16012683 (Version 2)
Quarter: 2019Q1

REPORT INFORMATION
  Report Type: Spontaneous
  Country: US (occurrence: US)
  Receive Date: 20190227
  Receipt Date: 20190228
  Transmission Date: 20190418
  Serious: No
  Sender: FDA-Public Use
  Company Number: US-BAYER-2019-041337

PATIENT
  Sex: Female

DRUGS (2)
  1. CLARITIN [Suspect]
     Active Substance: LORATADINE
     Indication: NASOPHARYNGITIS
  2. CLARITIN [Suspect]
     Active Substance: LORATADINE
     Indication: ALLERGIC RESPIRATORY SYMPTOM
     Route: 048

REACTIONS (8)
  - Product shape issue [None]
  - Drug ineffective [Unknown]
  - Product packaging quantity issue [None]
  - Product formulation issue [None]
  - Product friable [None]
  - Product physical issue [None]
  - Poor quality product administered [None]
  - Product physical consistency issue [None]
